FAERS Safety Report 5840251-2 (Version None)
Quarter: 2008Q3

REPORT INFORMATION
  Report Type: 
  Country: None (occurrence: None)
  Receive Date: 20080807
  Receipt Date: 20080807
  Transmission Date: 20090109
  Serious: Yes (Hospitalization, Disabling)
  Sender: FDA-Public Use
  Company Number: None

PATIENT
  Age: 68 Year
  Sex: Female
  Weight: 82.5547 kg

DRUGS (1)
  1. HYDROCODONE BITARTRATE AND ACETAMINOPHEN [Suspect]
     Indication: HERPES ZOSTER
     Dosage: 1 TABLET 3 X DAILY PO
     Route: 048
     Dates: start: 20080727, end: 20080802

REACTIONS (2)
  - FAECALOMA [None]
  - PAIN [None]
